FAERS Safety Report 9897432 (Version 2)
Quarter: 2014Q2

REPORT INFORMATION
  Report Type: Report from Study
  Country: US (occurrence: US)
  Receive Date: 20140214
  Receipt Date: 20140401
  Transmission Date: 20141212
  Serious: Yes (Death, Hospitalization)
  Sender: FDA-Public Use
  Company Number: US-JNJFOC-20140206694

PATIENT
  Age: 66 Year
  Sex: Male

DRUGS (2)
  1. REMICADE [Suspect]
     Indication: REITER^S SYNDROME
     Dosage: BEGAN INFLIXIMAB 9 YEAR AGO
     Route: 042
  2. REMICADE [Suspect]
     Indication: ARTHRITIS REACTIVE
     Dosage: BEGAN INFLIXIMAB 9 YEAR AGO
     Route: 042

REACTIONS (8)
  - Pericarditis [Unknown]
  - Blood pressure fluctuation [Unknown]
  - Blood glucose abnormal [Unknown]
  - Adverse event [Unknown]
  - Myocardial infarction [Fatal]
  - Unevaluable event [Unknown]
  - Renal necrosis [Unknown]
  - Off label use [Unknown]
